FAERS Safety Report 7109293-3 (Version None)
Quarter: 2010Q4

REPORT INFORMATION
  Report Type: 
  Country: None (occurrence: None)
  Receive Date: 20101117
  Receipt Date: 20101104
  Transmission Date: 20110411
  Serious: Yes (Death)
  Sender: FDA-Public Use
  Company Number: US-MYLANLABS-2010S1020556

PATIENT
  Age: 60 Year
  Sex: Female

DRUGS (3)
  1. NAPROXEN [Suspect]
     Indication: OVERDOSE
     Route: 048
  2. METOPROLOL [Suspect]
     Indication: OVERDOSE
     Route: 048
  3. AMLODIPINE [Suspect]
     Indication: OVERDOSE
     Route: 048

REACTIONS (2)
  - HYPOTENSION [None]
  - OVERDOSE [None]
